FAERS Safety Report 5768874-X (Version None)
Quarter: 2008Q2

REPORT INFORMATION
  Report Type: 
  Country: None (occurrence: None)
  Receive Date: 20080612
  Receipt Date: 20080313
  Transmission Date: 20081010
  Serious: No
  Sender: FDA-Public Use
  Company Number: US-ABBOTT-08P-163-0442669-00

PATIENT
  Sex: Male
  Weight: 83.99 kg

DRUGS (3)
  1. HUMIRA [Suspect]
     Indication: CROHN'S DISEASE
     Dosage: DIVIDED STARTER DOSE
     Route: 058
     Dates: start: 20080310, end: 20080310
  2. HUMIRA [Suspect]
     Dosage: DIVIDED STARTER DOSE
     Route: 058
     Dates: start: 20080312, end: 20080312
  3. HUMIRA [Suspect]

REACTIONS (2)
  - INJECTION SITE ERYTHEMA [None]
  - INJECTION SITE REACTION [None]
